FAERS Safety Report 7620305-0 (Version None)
Quarter: 2011Q3

REPORT INFORMATION
  Report Type: 
  Country: None (occurrence: None)
  Receive Date: 20110719
  Receipt Date: 20110708
  Transmission Date: 20111222
  Serious: Yes (Other)
  Sender: FDA-Public Use
  Company Number: FR-JNJFOC-20110705774

PATIENT
  Sex: Female

DRUGS (2)
  1. XARELTO [Suspect]
     Indication: HIP ARTHROPLASTY
     Route: 048
     Dates: start: 20110125, end: 20110127
  2. XARELTO [Suspect]
     Indication: THROMBOSIS PROPHYLAXIS
     Route: 048
     Dates: start: 20110125, end: 20110127

REACTIONS (5)
  - DRUG INEFFECTIVE [None]
  - VENOUS THROMBOSIS [None]
  - INCISION SITE HAEMATOMA [None]
  - PULMONARY EMBOLISM [None]
  - PHLEBITIS [None]
